FAERS Safety Report 8433062-5 (Version None)
Quarter: 2012Q2

REPORT INFORMATION
  Report Type: 
  Country: None (occurrence: None)
  Receive Date: 20120613
  Receipt Date: 20120608
  Transmission Date: 20120825
  Serious: Yes (Hospitalization)
  Sender: FDA-Public Use
  Company Number: FR-ROCHE-1076971

PATIENT
  Sex: Male
  Weight: 56 kg

DRUGS (5)
  1. LEVOTHYROXINE SODIUM [Concomitant]
  2. POLARAMINE [Concomitant]
     Dates: start: 20110531, end: 20120402
  3. MABTHERA [Suspect]
     Indication: MANTLE CELL LYMPHOMA
     Route: 042
     Dates: start: 20110531, end: 20120402
  4. ACETAMINOPHEN [Concomitant]
     Dates: start: 20110531, end: 20120402
  5. METHYLPREDNISOLONE [Concomitant]
     Dates: start: 20110531, end: 20120402

REACTIONS (1)
  - AUTOIMMUNE THYROIDITIS [None]
